FAERS Safety Report 5271533-3 (Version None)
Quarter: 2007Q1

REPORT INFORMATION
  Report Type: 
  Country: None (occurrence: None)
  Receive Date: 20070316
  Receipt Date: 20070302
  Transmission Date: 20070707
  Serious: No
  Sender: FDA-Public Use
  Company Number: 2007-154535-NL

PATIENT
  Age: 29 Year
  Sex: Female
  Weight: 81.6 kg

DRUGS (1)
  1. NUVARING [Suspect]
     Indication: CONTRACEPTION
     Dosage: VAGINAL
     Route: 067
     Dates: start: 20040101, end: 20040101

REACTIONS (1)
  - HYPERSENSITIVITY [None]
